FAERS Safety Report 11074241 (Version 1)
Quarter: 2015Q2

REPORT INFORMATION
  Report Type: Spontaneous
  Country: US (occurrence: None)
  Receive Date: 20150428
  Receipt Date: 20150428
  Transmission Date: 20150821
  Serious: No
  Sender: FDA-Public Use
  Company Number: None

PATIENT
  Age: 69 Year
  Sex: Male
  Weight: 96.16 kg

DRUGS (11)
  1. SIMVASTATIN. [Concomitant]
     Active Substance: SIMVASTATIN
  2. NUCYNTA [Concomitant]
     Active Substance: TAPENTADOL HYDROCHLORIDE
  3. LISINOPRIL. [Concomitant]
     Active Substance: LISINOPRIL
  4. GABAPENTIN. [Concomitant]
     Active Substance: GABAPENTIN
  5. MAGNESIUM [Concomitant]
     Active Substance: MAGNESIUM
  6. MULTIPLE [Concomitant]
  7. FISH OIL [Concomitant]
     Active Substance: FISH OIL
  8. TRAMADOL [Concomitant]
     Active Substance: TRAMADOL
  9. D3 [Concomitant]
     Active Substance: 25-HYDROXYCHOLECALCIFEROL, 5-TRANS-
  10. CELECOXIB 200 MG TEVA USA [Suspect]
     Active Substance: CELECOXIB
     Indication: ARTHRITIS
     Dosage: 1 PILL
     Route: 048
     Dates: start: 20150223
  11. VITAMIN B12 [Concomitant]
     Active Substance: CYANOCOBALAMIN

REACTIONS (2)
  - Product substitution issue [None]
  - Drug ineffective [None]
